FAERS Safety Report 4405492-X (Version None)
Quarter: 2004Q3

REPORT INFORMATION
  Report Type: 
  Country: None (occurrence: None)
  Receive Date: 20040723
  Receipt Date: 20030911
  Transmission Date: 20050211
  Serious: No
  Sender: FDA-Public Use
  Company Number: US-GLAXOSMITHKLINE-A0425414A

PATIENT
  Age: 74 Year
  Sex: Male

DRUGS (4)
  1. AVANDIA [Suspect]
     Dosage: 6MG PER DAY
     Route: 048
  2. AVALIDE [Concomitant]
  3. PREVACID [Concomitant]
  4. ZETIA [Concomitant]

REACTIONS (3)
  - CHEST DISCOMFORT [None]
  - JOINT SWELLING [None]
  - OEDEMA PERIPHERAL [None]
